FAERS Safety Report 5174398-3 (Version None)
Quarter: 2006Q4

REPORT INFORMATION
  Report Type: 
  Country: None (occurrence: None)
  Receive Date: 20061214
  Receipt Date: 20061102
  Transmission Date: 20070319
  Serious: Yes (Hospitalization)
  Sender: FDA-Public Use
  Company Number: DE-ELI_LILLY_AND_COMPANY-DE200611000712

PATIENT
  Age: 68 Year
  Sex: Female

DRUGS (10)
  1. HUMALOG [Suspect]
     Indication: DIABETES MELLITUS NON-INSULIN-DEPENDENT
     Route: 058
     Dates: start: 20060101
  2. DELIX [Concomitant]
     Dosage: 5 MG, UNK
     Route: 048
  3. DELIX PLUS [Concomitant]
     Dosage: UNK, EACH MORNING
     Route: 048
  4. ASPIRIN [Concomitant]
  5. OMEPRAZOL ^ACYFABRIK^ [Concomitant]
     Route: 048
  6. GABAPENTIN [Concomitant]
  7. TORSEMIDE [Concomitant]
  8. AMLODIPINE [Concomitant]
  9. BLOPRESS [Concomitant]
  10. PROTAPHANE MC [Concomitant]

REACTIONS (2)
  - SKIN EXFOLIATION [None]
  - THERMAL BURN [None]
